FAERS Safety Report 7773492-8 (Version None)
Quarter: 2011Q3

REPORT INFORMATION
  Report Type: 
  Country: None (occurrence: None)
  Receive Date: 20110922
  Receipt Date: 20110914
  Transmission Date: 20111222
  Serious: Yes (Hospitalization)
  Sender: FDA-Public Use
  Company Number: JP-CEPHALON-2011004835

PATIENT
  Sex: Male
  Weight: 73 kg

DRUGS (11)
  1. AMIKACIN [Concomitant]
     Dates: start: 20110905, end: 20110908
  2. SULFAMETHOXAZOLE AND TRIMETHOPRIM [Suspect]
     Route: 048
     Dates: end: 20110904
  3. ALLOPURINOL [Suspect]
     Dates: end: 20110904
  4. NORADRENALIN [Concomitant]
     Dates: start: 20110905, end: 20110908
  5. LANSOPRAZOLE [Suspect]
     Dates: end: 20110904
  6. ALBUMIN (HUMAN) [Concomitant]
     Dates: start: 20110905, end: 20110913
  7. TREANDA [Suspect]
     Indication: EXTRANODAL MARGINAL ZONE B-CELL LYMPHOMA (MALT TYPE)
     Route: 042
     Dates: start: 20110826, end: 20110827
  8. ACYCLOVIR [Suspect]
     Route: 048
     Dates: end: 20110904
  9. RITUXIMAB [Concomitant]
     Indication: EXTRANODAL MARGINAL ZONE B-CELL LYMPHOMA (MALT TYPE)
     Route: 042
     Dates: start: 20110825, end: 20110825
  10. CEFEPIME HYDROCHLORIDE [Concomitant]
     Dates: start: 20110905, end: 20110913
  11. MAGNESIUM OXIDE [Concomitant]
     Dates: end: 20110904

REACTIONS (3)
  - CARDIOMYOPATHY [None]
  - ALTERED STATE OF CONSCIOUSNESS [None]
  - ERYTHEMA MULTIFORME [None]
